FAERS Safety Report 18628508 (Version 7)
Quarter: 2023Q2

REPORT INFORMATION
  Report Type: Spontaneous
  Country: JP (occurrence: JP)
  Receive Date: 20201217
  Receipt Date: 20230511
  Transmission Date: 20230722
  Serious: Yes (Death, Hospitalization)
  Sender: FDA-Public Use
  Company Number: JP-DSJP-DSJ-2020-138702AA

PATIENT
  Age: 59 Year
  Sex: Female
  Weight: 45.1 kg

DRUGS (6)
  1. ENHERTU [Suspect]
     Active Substance: FAM-TRASTUZUMAB DERUXTECAN-NXKI
     Indication: Invasive ductal breast carcinoma
     Dosage: 243.54 MG
     Route: 041
     Dates: start: 20201012, end: 20201012
  2. ENHERTU [Suspect]
     Active Substance: FAM-TRASTUZUMAB DERUXTECAN-NXKI
     Indication: HER2 positive breast cancer
     Dosage: 198.44 MG/KG
     Route: 041
     Dates: start: 20201102, end: 20201102
  3. ENHERTU [Suspect]
     Active Substance: FAM-TRASTUZUMAB DERUXTECAN-NXKI
     Dosage: 198.44 MG/KG
     Route: 041
     Dates: start: 20201130, end: 20201130
  4. ENHERTU [Suspect]
     Active Substance: FAM-TRASTUZUMAB DERUXTECAN-NXKI
     Dosage: UNK, ONCE EVERY 3 WK
     Route: 041
     Dates: start: 20210412, end: 20210412
  5. HEPARIN [Suspect]
     Active Substance: HEPARIN SODIUM
     Indication: Pulmonary artery thrombosis
     Dosage: 15000IU/DAY
     Route: 041
     Dates: start: 20201214, end: 20201222
  6. HOKUNALIN                          /00654901/ [Concomitant]
     Indication: Cough
     Dosage: 2 MG, QD
     Dates: start: 20201012

REACTIONS (5)
  - Pulmonary artery thrombosis [Recovering/Resolving]
  - Disease progression [Fatal]
  - Nausea [Recovered/Resolved]
  - Vomiting [Recovered/Resolved]
  - Hepatic enzyme increased [Unknown]

NARRATIVE: CASE EVENT DATE: 20201012
